FAERS Safety Report 23702629 (Version 1)
Quarter: 2024Q2

REPORT INFORMATION
  Report Type: Spontaneous
  Country: CN (occurrence: CN)
  Receive Date: 20240403
  Receipt Date: 20240403
  Transmission Date: 20240715
  Serious: Yes (Hospitalization, Other)
  Sender: FDA-Public Use
  Company Number: CN-SA-SAC20240402001379

PATIENT
  Age: 84 Year
  Sex: Male
  Weight: 65 kg

DRUGS (2)
  1. CLOPIDOGREL BISULFATE [Suspect]
     Active Substance: CLOPIDOGREL BISULFATE
     Indication: Thrombosis
     Dosage: 75 MG, QD
     Route: 048
     Dates: start: 20240320, end: 20240321
  2. ASPIRIN [Suspect]
     Active Substance: ASPIRIN
     Indication: Thrombosis
     Dosage: 100 MG, QD
     Route: 048
     Dates: start: 20240320, end: 20240321

REACTIONS (3)
  - Lower gastrointestinal haemorrhage [Recovering/Resolving]
  - Haematochezia [Recovered/Resolved]
  - Urinary retention [Unknown]

NARRATIVE: CASE EVENT DATE: 20240321
